FAERS Safety Report 11401006 (Version 1)
Quarter: 2015Q3

REPORT INFORMATION
  Report Type: Spontaneous
  Country: CN (occurrence: CN)
  Receive Date: 20150820
  Receipt Date: 20150820
  Transmission Date: 20151125
  Serious: Yes (Death)
  Sender: FDA-Public Use
  Company Number: CN-ELI_LILLY_AND_COMPANY-CN201508004289

PATIENT
  Age: 55 Year
  Sex: Male

DRUGS (1)
  1. ZYPREXA [Suspect]
     Active Substance: OLANZAPINE
     Indication: ILLUSION
     Dosage: 5 MG, SINGLE
     Route: 048
     Dates: start: 20150629, end: 20150629

REACTIONS (4)
  - Sudden death [Fatal]
  - Alcohol withdrawal syndrome [Fatal]
  - Alcoholic liver disease [Fatal]
  - Vomiting [Unknown]

NARRATIVE: CASE EVENT DATE: 20150629
